FAERS Safety Report 6314654-6 (Version None)
Quarter: 2009Q3

REPORT INFORMATION
  Report Type: 
  Country: None (occurrence: None)
  Receive Date: 20090819
  Receipt Date: 20090812
  Transmission Date: 20100115
  Serious: Yes (Hospitalization, Disabling)
  Sender: FDA-Public Use
  Company Number: SI-AVENTIS-200512518GDDC

PATIENT
  Age: 71 Year
  Sex: Female
  Weight: 60 kg

DRUGS (7)
  1. ARAVA [Suspect]
     Route: 048
     Dates: start: 20021101, end: 20031101
  2. ARAVA [Suspect]
     Route: 048
     Dates: start: 20040101, end: 20041101
  3. NAPROXEN [Concomitant]
     Route: 048
     Dates: end: 20050301
  4. OMEPRAZOLE [Concomitant]
     Route: 048
     Dates: end: 20050301
  5. ALENDRONIC ACID [Concomitant]
     Route: 048
     Dates: end: 20050301
  6. METILPREDNISOLONE [Concomitant]
     Route: 048
  7. ALPHA D3 [Concomitant]
     Route: 048
     Dates: end: 20050301

REACTIONS (2)
  - OSTEONECROSIS [None]
  - SKIN ULCER [None]
